FAERS Safety Report 6740551-8 (Version None)
Quarter: 2010Q2

REPORT INFORMATION
  Report Type: 
  Country: None (occurrence: None)
  Receive Date: 20100525
  Receipt Date: 20100519
  Transmission Date: 20101027
  Serious: Yes (Death)
  Sender: FDA-Public Use
  Company Number: PHHY2010MX32490

PATIENT
  Age: 84 Year
  Sex: Male

DRUGS (2)
  1. DIOVAN [Suspect]
     Indication: HYPERTENSION
     Dosage: 80 MG, QD
  2. MEMANTINE HCL [Concomitant]
     Indication: PARKINSON'S DISEASE
     Dosage: 2 TABLETS PER DAY
     Dates: start: 20080101

REACTIONS (1)
  - INFARCTION [None]
